FAERS Safety Report 16912382 (Version 1)
Quarter: 2019Q4

REPORT INFORMATION
  Report Type: Report from Study
  Country: BE (occurrence: BE)
  Receive Date: 20191014
  Receipt Date: 20191014
  Transmission Date: 20200122
  Serious: No
  Sender: FDA-Public Use
  Company Number: BE-BEH-2019107961

PATIENT
  Age: 11 Year
  Sex: Female

DRUGS (1)
  1. HIZENTRA [Suspect]
     Active Substance: HUMAN IMMUNOGLOBULIN G
     Dosage: UNK
     Route: 058

REACTIONS (3)
  - Injection site nodule [Unknown]
  - Injection site pain [Unknown]
  - Injection site erythema [Unknown]

NARRATIVE: CASE EVENT DATE: 20191009
